FAERS Safety Report 23677786 (Version 1)
Quarter: 2024Q1

REPORT INFORMATION
  Report Type: Spontaneous
  Country: US (occurrence: US)
  Receive Date: 20240327
  Receipt Date: 20240327
  Transmission Date: 20240410
  Serious: No
  Sender: FDA-Public Use
  Company Number: US-002147023-NVSC2024US065549

PATIENT
  Sex: Female

DRUGS (1)
  1. COSENTYX [Suspect]
     Active Substance: SECUKINUMAB
     Indication: Product used for unknown indication
     Dosage: 300 MILLIGRAM PER MILLILITRE, Q2MO
     Route: 065

REACTIONS (5)
  - Device difficult to use [Unknown]
  - Product quality issue [Unknown]
  - Product design issue [Unknown]
  - Device leakage [Unknown]
  - Needle issue [Unknown]
